FAERS Safety Report 17391689 (Version 1)
Quarter: 2020Q1

REPORT INFORMATION
  Report Type: Spontaneous
  Country: US (occurrence: US)
  Receive Date: 20200207
  Receipt Date: 20200207
  Transmission Date: 20200409
  Serious: No
  Sender: FDA-Public Use
  Company Number: US-AMAG PHARMACEUTICALS, INC.-AMAG201900949

PATIENT
  Age: 33 Year
  Sex: Female

DRUGS (4)
  1. PRENATAL VITAMINS [Concomitant]
     Active Substance: VITAMINS
     Indication: PROPHYLAXIS
     Route: 065
  2. COLESEVELAM [Concomitant]
     Active Substance: COLESEVELAM
     Indication: CROHN^S DISEASE
     Route: 065
  3. PEPCID [Concomitant]
     Active Substance: FAMOTIDINE
     Indication: PRODUCT USED FOR UNKNOWN INDICATION
     Route: 065
  4. MAKENA [Suspect]
     Active Substance: HYDROXYPROGESTERONE CAPROATE
     Indication: PREMATURE DELIVERY
     Dosage: 250 MG, WEEKLY
     Route: 058
     Dates: start: 2019, end: 201902

REACTIONS (3)
  - Injection site pruritus [Unknown]
  - Emotional disorder [Unknown]
  - Urticaria [Recovered/Resolved]

NARRATIVE: CASE EVENT DATE: 2019
